FAERS Safety Report 7859585-5 (Version None)
Quarter: 2011Q4

REPORT INFORMATION
  Report Type: 
  Country: None (occurrence: None)
  Receive Date: 20111027
  Receipt Date: 20111021
  Transmission Date: 20120403
  Serious: Yes (Other)
  Sender: FDA-Public Use
  Company Number: BR-PFIZER INC-2011256424

PATIENT
  Age: 29 Year
  Sex: Female
  Weight: 83.9 kg

DRUGS (5)
  1. INSULIN ASPART [Suspect]
     Dosage: UNK, DURING MEALS
  2. GALVUS [Suspect]
     Indication: DIABETES MELLITUS
     Dosage: 50 MG, UNK
     Dates: start: 20110101
  3. INSULIN DETEMIR [Suspect]
     Dosage: 32 U BEFORE BED
  4. METFORMIN HCL [Suspect]
     Indication: BLOOD GLUCOSE INCREASED
     Dosage: 500 MG, 1X/DAY (AFTER DINNER)
     Dates: start: 20110101
  5. ATORVASTATIN CALCIUM [Suspect]
     Dosage: 20

REACTIONS (3)
  - GASTRIC DISORDER [None]
  - HYPOGLYCAEMIA [None]
  - BLOOD GLUCOSE INCREASED [None]
